FAERS Safety Report 7004548-5 (Version None)
Quarter: 2010Q3

REPORT INFORMATION
  Report Type: 
  Country: None (occurrence: None)
  Receive Date: 20100921
  Receipt Date: 20100910
  Transmission Date: 20110219
  Serious: No
  Sender: FDA-Public Use
  Company Number: 2009BI023482

PATIENT
  Sex: Female

DRUGS (2)
  1. TYSABRI [Suspect]
     Indication: MULTIPLE SCLEROSIS
     Route: 042
     Dates: start: 20090713, end: 20091019
  2. AVONEX [Concomitant]
     Indication: MULTIPLE SCLEROSIS
     Route: 030

REACTIONS (8)
  - BLOOD COUNT ABNORMAL [None]
  - CD4 LYMPHOCYTES DECREASED [None]
  - DRUG INEFFECTIVE [None]
  - INFUSION SITE RASH [None]
  - MEMORY IMPAIRMENT [None]
  - PRURITUS [None]
  - RASH [None]
  - WHITE BLOOD CELL COUNT ABNORMAL [None]
